FAERS Safety Report 10495465 (Version 2)
Quarter: 2014Q4

REPORT INFORMATION
  Report Type: Spontaneous
  Country: SE (occurrence: SE)
  Receive Date: 20141003
  Receipt Date: 20141023
  Transmission Date: 20150528
  Serious: Yes (Other)
  Sender: FDA-Public Use
  Company Number: SE-JNJFOC-20140923685

PATIENT
  Sex: Male

DRUGS (2)
  1. NICORETTE ORIGINAL [Suspect]
     Active Substance: NICOTINE
     Indication: TOBACCO ABUSE
     Dosage: 90 TO 100 CHEWING GUMS A DAY, APPROXIMATELY 6 CARTRIDGES A DAY
     Route: 048
  2. NICORETTE [Concomitant]
     Active Substance: NICOTINE
     Indication: PRODUCT USED FOR UNKNOWN INDICATION
     Route: 048

REACTIONS (4)
  - Extra dose administered [Unknown]
  - Capillary disorder [Unknown]
  - Drug dependence [Unknown]
  - Incorrect drug administration duration [Unknown]
